FAERS Safety Report 10979164 (Version 1)
Quarter: 2015Q2

REPORT INFORMATION
  Report Type: Spontaneous
  Country: HR (occurrence: HR)
  Receive Date: 20150402
  Receipt Date: 20150402
  Transmission Date: 20150821
  Serious: Yes (Other)
  Sender: FDA-Public Use
  Company Number: HR-TEVA-551667ISR

PATIENT
  Age: 57 Year
  Sex: Female

DRUGS (4)
  1. DAROB MITE [Concomitant]
     Indication: ANGINA PECTORIS
     Dosage: 160 MILLIGRAM DAILY;
     Route: 048
  2. SINERSUL FORTE [Suspect]
     Active Substance: SULFAMETHOXAZOLE\TRIMETHOPRIM
     Indication: CYSTITIS
     Dosage: 2 DOSAGE FORMS DAILY;
     Route: 048
     Dates: start: 20141207, end: 20141208
  3. NOLPAZA 20 MG [Concomitant]
     Indication: GASTROOESOPHAGEAL REFLUX DISEASE
     Dosage: 20 MILLIGRAM DAILY;
     Route: 048
  4. NORVASC [Concomitant]
     Active Substance: AMLODIPINE BESYLATE
     Indication: ESSENTIAL HYPERTENSION
     Dosage: 5 MILLIGRAM DAILY;
     Route: 048

REACTIONS (6)
  - Erythema [None]
  - Burning sensation [Recovered/Resolved]
  - Paraesthesia [None]
  - Rash [Recovered/Resolved]
  - Hypersensitivity [None]
  - Face oedema [Recovered/Resolved]

NARRATIVE: CASE EVENT DATE: 20141208
